FAERS Safety Report 14349603 (Version 1)
Quarter: 2018Q1

REPORT INFORMATION
  Report Type: Spontaneous
  Country: BG (occurrence: BG)
  Receive Date: 20180104
  Receipt Date: 20180104
  Transmission Date: 20180509
  Serious: No
  Sender: FDA-Public Use
  Company Number: BG-PHARMING GROUP N.V.-PHABG2017000272

PATIENT

DRUGS (1)
  1. RUCONEST [Suspect]
     Active Substance: HUMAN C1-ESTERASE INHIBITOR
     Indication: HEREDITARY ANGIOEDEMA
     Dosage: 2500 IU, AS NEEDED
     Route: 030

REACTIONS (2)
  - Product use issue [Unknown]
  - Underdose [Unknown]
